FAERS Safety Report 6680228-0 (Version None)
Quarter: 2010Q2

REPORT INFORMATION
  Report Type: 
  Country: None (occurrence: None)
  Receive Date: 20100413
  Receipt Date: 20100401
  Transmission Date: 20101027
  Serious: Yes (Death, Hospitalization)
  Sender: FDA-Public Use
  Company Number: GB-AMGEN-US403434

PATIENT
  Sex: Female

DRUGS (2)
  1. ENBREL [Suspect]
     Indication: PSORIASIS
     Dosage: 50 MG, FREQUENCY UNKNOWN
     Route: 058
     Dates: start: 20100210
  2. TRAMADOL HCL [Concomitant]
     Dosage: UNKNOWN
     Route: 048

REACTIONS (1)
  - SUBARACHNOID HAEMORRHAGE [None]
